FAERS Safety Report 8631111 (Version 2)
Quarter: 2013Q4

REPORT INFORMATION
  Report Type: Report from Study
  Country: JP (occurrence: JP)
  Receive Date: 20120622
  Receipt Date: 20131230
  Transmission Date: 20140711
  Serious: Yes (Hospitalization, Other)
  Sender: FDA-Public Use
  Company Number: JP-TEVA-338966USA

PATIENT
  Age: 67 Year
  Sex: Male
  Weight: 57.5 kg

DRUGS (8)
  1. BENDAMUSTINE [Suspect]
     Indication: NON-HODGKIN^S LYMPHOMA
     Dosage: 120 MG/M2 DAILY; ON DAY 1 AND DAY 2 OF EACH 28 DAY CYCLE
     Route: 042
     Dates: start: 20111026, end: 20131027
  2. BENDAMUSTINE [Suspect]
     Dosage: 120 MG/M2 DAILY; ON DAY 1 AND DAY 2 OF EACH 28 DAY CYCLE
     Route: 042
     Dates: start: 20111201, end: 20111202
  3. BENDAMUSTINE [Suspect]
     Dosage: 120 MG/M2 DAILY; ON DAY 1 AND DAY 2 OF EACH 28 DAY CYCLE
     Route: 042
     Dates: start: 20120105, end: 20120106
  4. BENDAMUSTINE [Suspect]
     Dosage: 90 MG/M2 DAILY; ON DAY 1 AND DAY 2 OF EACH 28 DAY CYCLE
     Route: 042
     Dates: start: 20120202, end: 20120203
  5. BENDAMUSTINE [Suspect]
     Dosage: 90 MG/M2 DAILY; ON DAY 1 AND DAY 2 OF EACH 28 DAY CYCLE
     Route: 042
     Dates: start: 20120301, end: 20120301
  6. BENDAMUSTINE [Suspect]
     Dosage: 90 MG/M2 DAILY; ON DAY 1 AND DAY 2 OF EACH 28 DAY CYCLE
     Route: 042
     Dates: start: 20120329, end: 20120330
  7. RITUXIMAB [Suspect]
     Indication: NON-HODGKIN^S LYMPHOMA
     Route: 042
     Dates: start: 20111026, end: 20120329
  8. CIPROFLOXACIN HYDROCHLORIDE [Concomitant]
     Indication: INFECTION
     Dosage: 900 MILLIGRAM DAILY;
     Dates: start: 20120420, end: 20120420

REACTIONS (3)
  - Pneumocystis jirovecii pneumonia [Recovered/Resolved]
  - Staphylococcal sepsis [Recovered/Resolved]
  - Cytomegalovirus infection [Recovering/Resolving]
